FAERS Safety Report 12304004 (Version 1)
Quarter: 2016Q2

REPORT INFORMATION
  Report Type: Spontaneous
  Country: US (occurrence: None)
  Receive Date: 20160425
  Receipt Date: 20160425
  Transmission Date: 20160815
  Serious: No
  Sender: FDA-Public Use
  Company Number: None

PATIENT
  Age: 31 Year
  Sex: Female

DRUGS (14)
  1. CHLORHEX [Concomitant]
  2. LOSARTAN. [Concomitant]
     Active Substance: LOSARTAN
  3. CEPHALEXIN. [Concomitant]
     Active Substance: CEPHALEXIN
  4. DIAZEPAM. [Concomitant]
     Active Substance: DIAZEPAM
  5. HYDROCO/APAP [Concomitant]
     Active Substance: ACETAMINOPHEN\HYDROCODONE
  6. LUPRON DEPOT [Suspect]
     Active Substance: LEUPROLIDE ACETATE
     Indication: PSORIASIS
     Dosage: 11.25MG EVERY 3 MONTHS INJ. IN MUSCLE
     Route: 030
     Dates: start: 20160405
  7. LUPRON DEPOT [Suspect]
     Active Substance: LEUPROLIDE ACETATE
     Indication: SEBORRHOEIC KERATOSIS
     Dosage: 11.25MG EVERY 3 MONTHS INJ. IN MUSCLE
     Route: 030
     Dates: start: 20160405
  8. FLUCONAZOLE. [Concomitant]
     Active Substance: FLUCONAZOLE
  9. METRONIDAZOL [Concomitant]
     Active Substance: METRONIDAZOLE
  10. HYDROCHLOROT [Suspect]
     Active Substance: HYDROCHLOROTHIAZIDE
  11. NORABE [Concomitant]
  12. FLUOCIN ACET OIL [Concomitant]
  13. POT CHLORIDE [Concomitant]
     Active Substance: POTASSIUM CHLORIDE
  14. NORETHIN [Concomitant]

REACTIONS (2)
  - Headache [None]
  - Nausea [None]

NARRATIVE: CASE EVENT DATE: 201604
